FAERS Safety Report 5403519-X (Version None)
Quarter: 2007Q3

REPORT INFORMATION
  Report Type: 
  Country: None (occurrence: None)
  Receive Date: 20070730
  Receipt Date: 20070718
  Transmission Date: 20080115
  Serious: No
  Sender: FDA-Public Use
  Company Number: 2007BI006087

PATIENT
  Age: 24 Year
  Sex: Male

DRUGS (4)
  1. AVONEX [Suspect]
     Indication: MULTIPLE SCLEROSIS
     Dosage: 30 UG;QW;IM
     Route: 030
     Dates: start: 20070309, end: 20070313
  2. GABAPENTIN [Concomitant]
  3. IBUPROFEN [Concomitant]
  4. LYRICA [Concomitant]

REACTIONS (9)
  - AGGRESSION [None]
  - BURNING SENSATION [None]
  - DRY MOUTH [None]
  - DYSPNOEA [None]
  - FATIGUE [None]
  - HYPERSENSITIVITY [None]
  - INFLUENZA LIKE ILLNESS [None]
  - MOOD SWINGS [None]
  - URTICARIA [None]
